FAERS Safety Report 25007040 (Version 2)
Quarter: 2025Q1

REPORT INFORMATION
  Report Type: Spontaneous
  Country: IT (occurrence: IT)
  Receive Date: 20250225
  Receipt Date: 20250301
  Transmission Date: 20250408
  Serious: Yes (Life-Threatening, Hospitalization, Congenital Anomaly, Other)
  Sender: AUROBINDO
  Company Number: IT-MINISAL02-1024069

PATIENT
  Age: 26 Year
  Sex: Male

DRUGS (3)
  1. CITALOPRAM HYDROBROMIDE [Suspect]
     Active Substance: CITALOPRAM HYDROBROMIDE
     Indication: Product used for unknown indication
     Dosage: 1120 MILLIGRAM, ONCE A DAY (THE PATIENT TOOK A TOTAL OF 60 MG OF TAVOR)
     Route: 048
     Dates: start: 20220907, end: 20220907
  2. ESCITALOPRAM OXALATE [Suspect]
     Active Substance: ESCITALOPRAM OXALATE
     Indication: Product used for unknown indication
     Dosage: 960 MILLIGRAM (THE PATIENT TOOK A TOTAL OF 960 MG)
     Route: 048
     Dates: start: 20220907, end: 20220907
  3. TAVOR (LORAZEPAM) [Suspect]
     Active Substance: LORAZEPAM
     Indication: Product used for unknown indication
     Dosage: 60 MILLIGRAM (THE PATIENT TOOK A TOTAL OF 60 MG OF TAVOR)
     Route: 048
     Dates: start: 20220907, end: 20220907

REACTIONS (3)
  - Drug abuse [Recovered/Resolved]
  - Intentional self-injury [Recovered/Resolved]
  - Sopor [Recovered/Resolved]

NARRATIVE: CASE EVENT DATE: 20220907
